FAERS Safety Report 7270289-2 (Version None)
Quarter: 2011Q1

REPORT INFORMATION
  Report Type: 
  Country: None (occurrence: None)
  Receive Date: 20110125
  Receipt Date: 20110125
  Transmission Date: 20110831
  Serious: Yes (Hospitalization)
  Sender: FDA-Public Use
  Company Number: None

PATIENT
  Age: 58 Year
  Sex: Male
  Weight: 88.4514 kg

DRUGS (1)
  1. BACTRIM [Suspect]
     Indication: POST PROCEDURAL INFECTION
     Dosage: 1 TABLET 3 TIMES A DAY PO
     Route: 048
     Dates: start: 20101205, end: 20101208

REACTIONS (8)
  - CONCUSSION [None]
  - RENAL HAEMORRHAGE [None]
  - SENSORY LOSS [None]
  - AMNESIA [None]
  - BLOOD URINE PRESENT [None]
  - CONFUSIONAL STATE [None]
  - FALL [None]
  - URINARY INCONTINENCE [None]
